FAERS Safety Report 19730695 (Version 3)
Quarter: 2024Q4

REPORT INFORMATION
  Report Type: Spontaneous
  Country: US (occurrence: US)
  Receive Date: 20210820
  Receipt Date: 20241203
  Transmission Date: 20250114
  Serious: No
  Sender: BIOGEN
  Company Number: US-BIOGEN-2021BI01041053

PATIENT
  Age: 27 Year
  Sex: Female

DRUGS (1)
  1. SPINRAZA [Suspect]
     Active Substance: NUSINERSEN
     Indication: Spinal muscular atrophy
     Route: 050
     Dates: start: 20180112, end: 20210811

REACTIONS (6)
  - Post lumbar puncture syndrome [Not Recovered/Not Resolved]
  - Neurological procedural complication [Not Recovered/Not Resolved]
  - Procedural pain [Not Recovered/Not Resolved]
  - Procedural nausea [Not Recovered/Not Resolved]
  - Procedural complication [Unknown]
  - Off label use [Unknown]

NARRATIVE: CASE EVENT DATE: 20210811
